FAERS Safety Report 7134405-5 (Version None)
Quarter: 2010Q4

REPORT INFORMATION
  Report Type: 
  Country: None (occurrence: None)
  Receive Date: 20101130
  Receipt Date: 20101130
  Transmission Date: 20110411
  Serious: Yes (Life-Threatening)
  Sender: FDA-Public Use
  Company Number: None

PATIENT
  Age: 47 Year
  Sex: Male
  Weight: 133 kg

DRUGS (3)
  1. LEVETIRACETAM [Suspect]
     Indication: AFFECTIVE DISORDER
     Dosage: 250 MG QID PO
     Route: 048
     Dates: start: 20091201, end: 20100913
  2. LEVETIRACETAM [Suspect]
     Indication: CONVULSION
     Dosage: 250 MG QID PO
     Route: 048
     Dates: start: 20091201, end: 20100913
  3. LEVETIRACETAM [Suspect]
     Indication: DEPRESSION
     Dosage: 250 MG QID PO
     Route: 048
     Dates: start: 20091201, end: 20100913

REACTIONS (4)
  - AGGRESSION [None]
  - AGITATION [None]
  - DEPRESSION [None]
  - SUICIDAL IDEATION [None]
